FAERS Safety Report 10022229 (Version 3)
Quarter: 2014Q1

REPORT INFORMATION
  Report Type: Spontaneous
  Country: US (occurrence: None)
  Receive Date: 20131217
  Receipt Date: 20140304
  Transmission Date: 20141002
  Serious: Yes (Hospitalization, Other)
  Sender: FDA-Public Use
  Company Number: ADR-2013-00960

PATIENT
  Age: 60 Year
  Sex: Female

DRUGS (2)
  1. LIORESAL [Suspect]
     Indication: MUSCLE SPASTICITY
     Dosage: 1000 MCG/DAY; SEE B5
  2. ORAL BACLOFEN [Suspect]

REACTIONS (16)
  - Confusional state [None]
  - Foot fracture [None]
  - Agitation [None]
  - Aggression [None]
  - Underdose [None]
  - Drug withdrawal syndrome [None]
  - Muscle spasticity [None]
  - Device breakage [None]
  - Infection [None]
  - Wound dehiscence [None]
  - Exposure to contaminated device [None]
  - No therapeutic response [None]
  - Muscle spasticity [None]
  - Implant site infection [None]
  - Device extrusion [None]
  - Implant site erosion [None]
